FAERS Safety Report 23245446 (Version 2)
Quarter: 2023Q4

REPORT INFORMATION
  Report Type: Spontaneous
  Country: JP (occurrence: JP)
  Receive Date: 20231130
  Receipt Date: 20231206
  Transmission Date: 20240109
  Serious: Yes (Hospitalization)
  Sender: FDA-Public Use
  Company Number: JP-ABBVIE-5505527

PATIENT
  Age: 48 Year
  Sex: Male

DRUGS (1)
  1. RINVOQ [Suspect]
     Active Substance: UPADACITINIB
     Indication: Crohn^s disease
     Dosage: FORM STRENGTH 45 MILLIGRAM
     Route: 048
     Dates: start: 20231016, end: 20231126

REACTIONS (8)
  - Pyrexia [Recovered/Resolved]
  - Tonsillitis [Recovered/Resolved]
  - Oral candidiasis [Recovering/Resolving]
  - Meningitis aseptic [Unknown]
  - Pyrexia [Recovered/Resolved]
  - Headache [Not Recovered/Not Resolved]
  - Vomiting [Not Recovered/Not Resolved]
  - Device related infection [Recovering/Resolving]

NARRATIVE: CASE EVENT DATE: 20231107
